FAERS Safety Report 25375463 (Version 5)
Quarter: 2025Q4

REPORT INFORMATION
  Report Type: Spontaneous
  Country: US (occurrence: US)
  Receive Date: 20250529
  Receipt Date: 20251210
  Transmission Date: 20260118
  Serious: Yes (Other)
  Sender: NOVARTIS
  Company Number: US-002147023-NVSC2025US084616

PATIENT
  Sex: Male

DRUGS (3)
  1. TAFINLAR [Suspect]
     Active Substance: DABRAFENIB MESYLATE
     Indication: Lung carcinoma cell type unspecified stage 0
     Dosage: 150 MG, BID
     Route: 048
     Dates: start: 202503
  2. MEKINIST [Suspect]
     Active Substance: TRAMETINIB DIMETHYL SULFOXIDE
     Indication: Lung carcinoma cell type unspecified stage 0
     Dosage: 2 MG, QD
     Route: 048
     Dates: start: 202502
  3. MEKINIST [Suspect]
     Active Substance: TRAMETINIB DIMETHYL SULFOXIDE
     Dosage: 2 MG, QD
     Route: 048
     Dates: start: 20250304

REACTIONS (12)
  - Choking [Unknown]
  - Visual impairment [Unknown]
  - Asthenopia [Unknown]
  - Eye discharge [Unknown]
  - Onychoclasis [Unknown]
  - Cough [Unknown]
  - Dry skin [Unknown]
  - Fatigue [Unknown]
  - Dry throat [Unknown]
  - Faecaluria [Unknown]
  - Pruritus [Unknown]
  - Skin texture abnormal [Unknown]
